FAERS Safety Report 7560500-2 (Version None)
Quarter: 2011Q2

REPORT INFORMATION
  Report Type: 
  Country: None (occurrence: None)
  Receive Date: 20110614
  Receipt Date: 20110601
  Transmission Date: 20111010
  Serious: Yes (Hospitalization, Other)
  Sender: FDA-Public Use
  Company Number: 2011MA006670

PATIENT
  Age: 68 Year
  Sex: Male

DRUGS (3)
  1. METFORMIN HYDROCHLORIDE [Suspect]
     Indication: TYPE 2 DIABETES MELLITUS
  2. ANGIOTENSIN II RECEPTOR BLOCKERS [Concomitant]
  3. NSAIDS [Concomitant]

REACTIONS (6)
  - HAEMODIALYSIS [None]
  - HYPOGLYCAEMIC COMA [None]
  - BLOOD CREATININE INCREASED [None]
  - VOMITING [None]
  - DIARRHOEA [None]
  - LACTIC ACIDOSIS [None]
